FAERS Safety Report 11903683 (Version 1)
Quarter: 2016Q1

REPORT INFORMATION
  Report Type: Report from Study
  Country: US (occurrence: US)
  Receive Date: 20160108
  Receipt Date: 20160108
  Transmission Date: 20160526
  Serious: No
  Sender: FDA-Public Use
  Company Number: US-ABBVIE-15P-163-1502671-00

PATIENT
  Age: 53 Year
  Sex: Male

DRUGS (2)
  1. VIEKIRA PAK [Suspect]
     Active Substance: DASABUVIR\OMBITASVIR\PARITAPREVIR\RITONAVIR
     Indication: HEPATITIS C
     Dosage: 2 PINK TABLETS IN AM; 1 BEIGE TABLET IN AM AND THE PM
     Route: 048
     Dates: start: 201510
  2. RIBAVIRIN. [Suspect]
     Active Substance: RIBAVIRIN
     Indication: HEPATITIS C
     Route: 048

REACTIONS (4)
  - Nausea [Unknown]
  - Decreased appetite [Unknown]
  - Hypertension [Unknown]
  - Vomiting [Unknown]

NARRATIVE: CASE EVENT DATE: 201510
